FAERS Safety Report 7553843-X (Version None)
Quarter: 2011Q2

REPORT INFORMATION
  Report Type: 
  Country: None (occurrence: None)
  Receive Date: 20110617
  Receipt Date: 20110613
  Transmission Date: 20111010
  Serious: Yes (Life-Threatening, Hospitalization, Other)
  Sender: FDA-Public Use
  Company Number: US-BRISTOL-MYERS SQUIBB COMPANY-15543101

PATIENT
  Age: 24 Year
  Sex: Male

DRUGS (1)
  1. ABILIFY [Suspect]
     Dosage: STARTED 3 WEEKS BEFORE
     Route: 048

REACTIONS (3)
  - FATIGUE [None]
  - TYPE 1 DIABETES MELLITUS [None]
  - COMA [None]
